FAERS Safety Report 8358791-3 (Version None)
Quarter: 2012Q2

REPORT INFORMATION
  Report Type: 
  Country: None (occurrence: None)
  Receive Date: 20120514
  Receipt Date: 20120502
  Transmission Date: 20120825
  Serious: Yes (Hospitalization)
  Sender: FDA-Public Use
  Company Number: US-ELI_LILLY_AND_COMPANY-US201204005166

PATIENT
  Sex: Female

DRUGS (16)
  1. POTASSIUM CHLORIDE [Concomitant]
  2. LUTEIN [Concomitant]
  3. PRAVASTATIN [Concomitant]
  4. NIASPAN [Concomitant]
  5. LORAZEPAM [Concomitant]
  6. FORTEO [Suspect]
     Indication: OSTEOPOROSIS
     Dosage: 20 UG, QD
     Route: 065
     Dates: start: 20120413, end: 20120415
  7. AMLODIPINE BESYLATE [Concomitant]
  8. COQ10 [Concomitant]
  9. CHLORACON [Concomitant]
  10. METOPROLOL TARTRATE [Concomitant]
  11. FLAGYL [Concomitant]
  12. VITAMIN D [Concomitant]
  13. FISH OIL [Concomitant]
  14. PLAVIX [Concomitant]
  15. FORTEO [Suspect]
     Dosage: 20 UG, QD
     Route: 065
     Dates: start: 20120427
  16. ASPIRIN [Concomitant]

REACTIONS (6)
  - NASOPHARYNGITIS [None]
  - COLITIS ISCHAEMIC [None]
  - RECTAL HAEMORRHAGE [None]
  - HYPOTENSION [None]
  - DIARRHOEA [None]
  - DIZZINESS [None]
